FAERS Safety Report 20712126 (Version 1)
Quarter: 2022Q2

REPORT INFORMATION
  Report Type: Spontaneous
  Country: US (occurrence: US)
  Receive Date: 20220414
  Receipt Date: 20220414
  Transmission Date: 20220721
  Serious: Yes (Hospitalization)
  Sender: FDA-Public Use
  Company Number: US-ACADIA PHARMACEUTICALS INC.-ACA-2022-PIM-001255

PATIENT
  Age: 86 Year
  Sex: Male
  Weight: 68 kg

DRUGS (21)
  1. NUPLAZID [Suspect]
     Active Substance: PIMAVANSERIN TARTRATE
     Indication: Parkinson^s disease psychosis
     Dosage: 34 MILLIGRAM, QD
     Route: 048
     Dates: start: 202112
  2. NUPLAZID [Suspect]
     Active Substance: PIMAVANSERIN TARTRATE
     Indication: Hallucination
  3. NUPLAZID [Suspect]
     Active Substance: PIMAVANSERIN TARTRATE
     Indication: Delusion
  4. SINEMET [Concomitant]
     Active Substance: CARBIDOPA\LEVODOPA
  5. ASPIRIN [Concomitant]
     Active Substance: ASPIRIN
     Dosage: 81 MILLIGRAM
  6. DIETARY SUPPLEMENT\HERBALS [Concomitant]
     Active Substance: DIETARY SUPPLEMENT\HERBALS
  7. RIVASTIGMINE [Concomitant]
     Active Substance: RIVASTIGMINE
  8. LISINOPRIL [Concomitant]
     Active Substance: LISINOPRIL
  9. ATORVASTATIN [Concomitant]
     Active Substance: ATORVASTATIN
     Dosage: 80 MILLIGRAM
  10. CHOLECALCIFEROL [Concomitant]
     Active Substance: CHOLECALCIFEROL
  11. VITAMIN B12 [Concomitant]
     Active Substance: CYANOCOBALAMIN
  12. VITAMIN C [Concomitant]
     Active Substance: ASCORBIC ACID
  13. DOCUSATE SODIUM [Concomitant]
     Active Substance: DOCUSATE SODIUM
     Dosage: 200 BID (UNKNOWN UNITS)
  14. ZINC [Concomitant]
     Active Substance: ZINC
  15. NIACINAMIDE [Concomitant]
     Active Substance: NIACINAMIDE
  16. PROBENECID [Concomitant]
     Active Substance: PROBENECID
  17. FAMOTIDINE [Concomitant]
     Active Substance: FAMOTIDINE
     Dosage: 20 MILLIGRAM
  18. FERROUS SULFATE [Concomitant]
     Active Substance: FERROUS SULFATE
  19. FOLIC ACID [Concomitant]
     Active Substance: FOLIC ACID
     Dosage: 1 MILLIGRAM
  20. GABAPENTIN [Concomitant]
     Active Substance: GABAPENTIN
     Dosage: 100 MILLIGRAM, BID
  21. MELATONIN [Concomitant]
     Active Substance: MELATONIN
     Dosage: 20 MILLIGRAM

REACTIONS (1)
  - Hyponatraemia [Unknown]

NARRATIVE: CASE EVENT DATE: 20220402
